FAERS Safety Report 8401067-6 (Version None)
Quarter: 2012Q2

REPORT INFORMATION
  Report Type: 
  Country: None (occurrence: None)
  Receive Date: 20120530
  Receipt Date: 20120530
  Transmission Date: 20120825
  Serious: Yes (Disabling)
  Sender: FDA-Public Use
  Company Number: None

PATIENT
  Age: 29 Year
  Sex: Male
  Weight: 83.9154 kg

DRUGS (1)
  1. LEVAQUIN [Suspect]
     Indication: OROPHARYNGEAL PAIN
     Dosage: 500MG 1 PO
     Route: 048
     Dates: start: 20110331, end: 20110403

REACTIONS (7)
  - TENDONITIS [None]
  - NEUROPATHY PERIPHERAL [None]
  - MYALGIA [None]
  - MUSCLE SPASMS [None]
  - ROTATOR CUFF SYNDROME [None]
  - TACHYCARDIA [None]
  - MUSCLE TWITCHING [None]
